FAERS Safety Report 11993727 (Version 4)
Quarter: 2016Q3

REPORT INFORMATION
  Report Type: Spontaneous
  Country: US (occurrence: US)
  Receive Date: 20160203
  Receipt Date: 20160908
  Transmission Date: 20161109
  Serious: Yes (Other)
  Sender: FDA-Public Use
  Company Number: US-PFIZER INC-2016036329

PATIENT
  Age: 61 Year
  Sex: Male
  Weight: 83.91 kg

DRUGS (5)
  1. ALPRAZOLAM. [Suspect]
     Active Substance: ALPRAZOLAM
     Dosage: UNK
  2. XANAX [Suspect]
     Active Substance: ALPRAZOLAM
     Dosage: 0.5 MG, UNK
     Route: 048
  3. ALPRAZOLAM. [Suspect]
     Active Substance: ALPRAZOLAM
     Dosage: 1 MG, UNK
  4. XANAX [Suspect]
     Active Substance: ALPRAZOLAM
     Dosage: 1 MG, 4X/DAY
     Route: 048
     Dates: start: 2015
  5. XANAX [Suspect]
     Active Substance: ALPRAZOLAM
     Indication: ANXIETY
     Dosage: 0.25 MG, UNK
     Route: 048

REACTIONS (17)
  - Product solubility abnormal [Unknown]
  - Drug tolerance increased [Unknown]
  - Tracheal disorder [Recovered/Resolved]
  - Suspected counterfeit product [Unknown]
  - Nasopharyngitis [Unknown]
  - Dyspnoea [Recovered/Resolved]
  - Product taste abnormal [Unknown]
  - Product quality issue [Unknown]
  - Drug ineffective [Unknown]
  - Headache [Unknown]
  - Asthenia [Unknown]
  - Drug effect decreased [Unknown]
  - Malaise [Unknown]
  - Somatic symptom disorder [Unknown]
  - Prescription drug used without a prescription [Unknown]
  - Poor quality drug administered [Unknown]
  - Nausea [Unknown]
